FAERS Safety Report 7161512-3 (Version None)
Quarter: 2010Q4

REPORT INFORMATION
  Report Type: 
  Country: None (occurrence: None)
  Receive Date: 20101215
  Receipt Date: 20101207
  Transmission Date: 20110411
  Serious: Yes (Other)
  Sender: FDA-Public Use
  Company Number: US-PFIZER INC-2007048888

PATIENT
  Sex: Male
  Weight: 113.38 kg

DRUGS (5)
  1. SUTENT [Suspect]
     Indication: RENAL CELL CARCINOMA
     Dosage: 50 MG, 1X/DAY
     Route: 048
     Dates: start: 20060726
  2. ALLOPURINOL [Concomitant]
  3. COLCHICINE [Concomitant]
  4. ASCORBIC ACID [Concomitant]
  5. ATENOLOL [Concomitant]
     Indication: HYPERTENSION

REACTIONS (10)
  - DIARRHOEA [None]
  - DYSGEUSIA [None]
  - HEADACHE [None]
  - HYPERTENSION [None]
  - NASAL CONGESTION [None]
  - NAUSEA [None]
  - PAIN IN EXTREMITY [None]
  - RASH [None]
  - SKIN IRRITATION [None]
  - WOUND [None]
